FAERS Safety Report 8315811-X (Version None)
Quarter: 2012Q2

REPORT INFORMATION
  Report Type: 
  Country: None (occurrence: None)
  Receive Date: 20120427
  Receipt Date: 20120426
  Transmission Date: 20120825
  Serious: Yes (Hospitalization, Other)
  Sender: FDA-Public Use
  Company Number: IT-BRISTOL-MYERS SQUIBB COMPANY-16528960

PATIENT
  Age: 79 Year
  Sex: Female

DRUGS (3)
  1. SOTALOL HCL [Concomitant]
     Route: 048
  2. FUROSEMIDE [Concomitant]
  3. COUMADIN [Suspect]
     Indication: ATRIAL FIBRILLATION
     Dosage: INTERRUPTED ON 31MAR12, RESTARTED,ANTICOAGULANT THERAPY
     Route: 048
     Dates: start: 20070101

REACTIONS (2)
  - EPISTAXIS [None]
  - BLOOD PRESSURE INCREASED [None]
